FAERS Safety Report 21386569 (Version 1)
Quarter: 2022Q3

REPORT INFORMATION
  Report Type: Spontaneous
  Country: DE (occurrence: DE)
  Receive Date: 20220928
  Receipt Date: 20220928
  Transmission Date: 20221027
  Serious: Yes (Hospitalization)
  Sender: FDA-Public Use
  Company Number: DE-ANIPHARMA-2022-DE-000151

PATIENT
  Age: 81 Year
  Sex: Male

DRUGS (5)
  1. CANDESARTAN CILEXETIL AND HYDROCHLOROTHIAZIDE [Suspect]
     Active Substance: CANDESARTAN CILEXETIL\HYDROCHLOROTHIAZIDE
     Indication: Product used for unknown indication
     Dosage: 32|25 MG, 1-0-0-0
     Route: 065
  2. NEPAFENAC [Suspect]
     Active Substance: NEPAFENAC
     Dosage: 1 DROP, 1-0-1-0
     Route: 065
  3. LERCANIDIPINE [Suspect]
     Active Substance: LERCANIDIPINE
     Dosage: 10 MG-1-0-0-0
     Route: 065
  4. PREDNISOLONE [Concomitant]
     Active Substance: PREDNISOLONE
     Dosage: 1 DROP, 1-0-1-0
     Route: 065
  5. BETAHISTINE [Concomitant]
     Active Substance: BETAHISTINE
     Dosage: 12 MG, 1-0-0-0T
     Route: 065

REACTIONS (4)
  - Anaemia [Unknown]
  - Dehydration [Unknown]
  - Acute kidney injury [Unknown]
  - Renal impairment [Unknown]
